FAERS Safety Report 4699090-0 (Version None)
Quarter: 2005Q2

REPORT INFORMATION
  Report Type: 
  Country: None (occurrence: None)
  Receive Date: 20050624
  Receipt Date: 20050519
  Transmission Date: 20051028
  Serious: Yes (Hospitalization)
  Sender: FDA-Public Use
  Company Number: GB-ROCHE-405127

PATIENT
  Sex: Female

DRUGS (6)
  1. LARIAM [Suspect]
     Indication: MALARIA PROPHYLAXIS
     Dosage: STARTED AFTER VERAPAMIL.
     Route: 048
  2. LARIAM [Suspect]
     Route: 048
  3. VERAPAMIL [Suspect]
     Indication: EXTRASYSTOLES
     Dosage: STARTED BEFORE MEFLOQUINE (LARIAM).
     Route: 065
  4. VERAPAMIL [Suspect]
     Route: 065
  5. ASPIRIN [Concomitant]
     Indication: HYPERCHOLESTEROLAEMIA
  6. SIMVASTATIN [Concomitant]
     Indication: HYPERCHOLESTEROLAEMIA

REACTIONS (4)
  - BLOOD PRESSURE INCREASED [None]
  - LOSS OF CONSCIOUSNESS [None]
  - PARAESTHESIA [None]
  - SPEECH DISORDER [None]
